FAERS Safety Report 16664110 (Version 1)
Quarter: 2019Q3

REPORT INFORMATION
  Report Type: Report from Study
  Country: GB (occurrence: GB)
  Receive Date: 20190802
  Receipt Date: 20190802
  Transmission Date: 20191004
  Serious: Yes (Death, Hospitalization)
  Sender: FDA-Public Use
  Company Number: GB-MYLANLABS-2019M1072483

PATIENT
  Age: 49 Year
  Sex: Female

DRUGS (17)
  1. TRASTUZUMAB. [Suspect]
     Active Substance: TRASTUZUMAB
     Indication: BREAST CANCER METASTATIC
     Dosage: 430.5 MILLIGRAM, QD
     Route: 042
     Dates: start: 20150615, end: 20150615
  2. CAPECITABINE. [Suspect]
     Active Substance: CAPECITABINE
     Indication: BREAST CANCER METASTATIC
     Dosage: 2000 MILLIGRAM, Q3W
     Route: 048
     Dates: start: 20170918, end: 20171221
  3. DENOSUMAB [Concomitant]
     Active Substance: DENOSUMAB
     Dosage: 120 MILLIGRAM
     Route: 058
     Dates: start: 20171006, end: 20180202
  4. TRASTUZUMAB. [Suspect]
     Active Substance: TRASTUZUMAB
     Dosage: 304.5 MILLIGRAM, Q3W
     Route: 042
     Dates: start: 20150707
  5. PERTUZUMAB. [Suspect]
     Active Substance: PERTUZUMAB
     Dosage: 420 MILLIGRAM, Q3W
     Route: 042
     Dates: start: 20150707
  6. DOCETAXEL. [Suspect]
     Active Substance: DOCETAXEL
     Indication: BREAST CANCER METASTATIC
     Dosage: 120 MILLIGRAM, QD
     Route: 042
     Dates: start: 20150616, end: 20150616
  7. SELENIUM [Concomitant]
     Active Substance: SELENIUM
     Dosage: 55 MICROGRAM, QD
     Route: 048
  8. ALOE VERA [Concomitant]
     Active Substance: ALOE VERA LEAF
     Dosage: 25 ML,CM3
     Route: 048
  9. TRASTUZUMAB. [Suspect]
     Active Substance: TRASTUZUMAB
     Dosage: 200 MILLIGRAM, Q3W
     Route: 042
     Dates: start: 20161213, end: 20170711
  10. CAPECITABINE. [Suspect]
     Active Substance: CAPECITABINE
     Dosage: 1500 MILLIGRAM, Q3W
     Route: 048
     Dates: start: 20171221
  11. PERTUZUMAB. [Suspect]
     Active Substance: PERTUZUMAB
     Indication: BREAST CANCER METASTATIC
     Dosage: 840 MILLIGRAM, QD
     Route: 042
     Dates: start: 20150615, end: 20150615
  12. DOCETAXEL. [Suspect]
     Active Substance: DOCETAXEL
     Dosage: 90 MILLIGRAM, Q3W
     Route: 042
     Dates: start: 20150707
  13. DEXAMETHASONE. [Concomitant]
     Active Substance: DEXAMETHASONE
     Dosage: 16 MILLIGRAM, QD
     Route: 048
     Dates: start: 20150615, end: 20150617
  14. DEXAMETHASONE. [Concomitant]
     Active Substance: DEXAMETHASONE
     Dosage: 20 MILLIGRAM
     Route: 042
     Dates: start: 20150707
  15. ZOMETA [Concomitant]
     Active Substance: ZOLEDRONIC ACID
     Dosage: 4 MILLIGRAM
     Route: 042
     Dates: start: 20180206
  16. METOCLOPRAMIDE. [Concomitant]
     Active Substance: METOCLOPRAMIDE
     Dosage: 10 MILLIGRAM
     Route: 048
     Dates: start: 20150615, end: 20151115
  17. FILGRASTIM [Concomitant]
     Active Substance: FILGRASTIM
     Dosage: 300 MILLIGRAM, QD
     Route: 058
     Dates: start: 20151123, end: 20151129

REACTIONS (1)
  - Constipation [Fatal]

NARRATIVE: CASE EVENT DATE: 20180927
